FAERS Safety Report 4951575-5 (Version None)
Quarter: 2006Q1

REPORT INFORMATION
  Report Type: 
  Country: None (occurrence: None)
  Receive Date: 20060317
  Receipt Date: 20060302
  Transmission Date: 20060701
  Serious: Yes (Life-Threatening, Hospitalization)
  Sender: FDA-Public Use
  Company Number: S06-TUR-00990-01

PATIENT
  Age: 34 Year
  Sex: Female

DRUGS (2)
  1. MEMANTINE HCL [Suspect]
     Dosage: 2000 MG ONCE PO
     Route: 048
  2. ANTIDIABETIC [Concomitant]

REACTIONS (6)
  - AGITATION [None]
  - COMA [None]
  - DIPLOPIA [None]
  - LOSS OF EMPLOYMENT [None]
  - MULTIPLE DRUG OVERDOSE INTENTIONAL [None]
  - SUICIDE ATTEMPT [None]
